FAERS Safety Report 19507524 (Version 1)
Quarter: 2021Q3

REPORT INFORMATION
  Report Type: Spontaneous
  Country: CN (occurrence: CN)
  Receive Date: 20210708
  Receipt Date: 20210708
  Transmission Date: 20211014
  Serious: Yes (Life-Threatening, Hospitalization, Other)
  Sender: FDA-Public Use
  Company Number: CN-ASTRAZENECA-2021A586908

PATIENT
  Age: 3204 Day
  Sex: Female
  Weight: 40 kg

DRUGS (6)
  1. SODIUM CHLORIDE. [Concomitant]
     Active Substance: SODIUM CHLORIDE
     Indication: MEDICATION DILUTION
     Route: 041
     Dates: start: 20210621, end: 20210621
  2. DOXOFYLLINE [Suspect]
     Active Substance: DOXOFYLLINE
     Indication: BRONCHITIS
     Route: 041
     Dates: start: 20210621, end: 20210621
  3. SODIUM SULFATE/SODIUM BICARBONATE/POTASSIUM CHLORI DE [Suspect]
     Active Substance: POTASSIUM CHLORIDE\SODIUM BICARBONATE\SODIUM SULFATE
     Indication: BRONCHITIS
     Route: 041
     Dates: start: 20210621, end: 20210621
  4. GLUCOSE INJECTION [Concomitant]
     Active Substance: DEXTROSE
     Indication: MEDICATION DILUTION
     Route: 041
     Dates: start: 20210621, end: 20210621
  5. BUDESONIDE. [Suspect]
     Active Substance: BUDESONIDE
     Indication: BRONCHITIS
     Route: 055
     Dates: start: 20210621, end: 20210621
  6. SALBUTAMOL SULFATE [Suspect]
     Active Substance: ALBUTEROL SULFATE
     Indication: BRONCHITIS
     Route: 055
     Dates: start: 20210621, end: 20210621

REACTIONS (9)
  - Dyspnoea [Recovered/Resolved]
  - Headache [Recovered/Resolved]
  - Heart rate increased [Unknown]
  - Rash erythematous [Recovering/Resolving]
  - Hypoaesthesia [Unknown]
  - Anaphylactoid reaction [Recovered/Resolved]
  - Abdominal pain [Recovered/Resolved]
  - Musculoskeletal stiffness [Unknown]
  - Oropharyngeal pain [Recovered/Resolved]

NARRATIVE: CASE EVENT DATE: 20210621
